FAERS Safety Report 11720027 (Version 1)
Quarter: 2015Q4

REPORT INFORMATION
  Report Type: Report from Study
  Country: US (occurrence: US)
  Receive Date: 20151110
  Receipt Date: 20151110
  Transmission Date: 20160304
  Serious: Yes (Death, Hospitalization)
  Sender: FDA-Public Use
  Company Number: US-ROCHE-1644630

PATIENT
  Age: 93 Year
  Sex: Male

DRUGS (2)
  1. LUCENTIS [Suspect]
     Active Substance: RANIBIZUMAB
     Indication: NEOVASCULAR AGE-RELATED MACULAR DEGENERATION
     Route: 065
  2. PREDNISONE. [Concomitant]
     Active Substance: PREDNISONE

REACTIONS (3)
  - Myasthenia gravis [Unknown]
  - Hernia repair [Unknown]
  - Death [Fatal]

NARRATIVE: CASE EVENT DATE: 201202
